FAERS Safety Report 18820640 (Version 1)
Quarter: 2021Q1

REPORT INFORMATION
  Report Type: Spontaneous
  Country: US (occurrence: US)
  Receive Date: 20210201
  Receipt Date: 20210201
  Transmission Date: 20210419
  Serious: Yes (Hospitalization, Disabling)
  Sender: FDA-Public Use
  Company Number: None

PATIENT
  Age: 11 Year
  Sex: Female
  Weight: 47.25 kg

DRUGS (1)
  1. MONTELUKAST 5 MG CHEW TAB [Suspect]
     Active Substance: MONTELUKAST SODIUM
     Indication: SEASONAL ALLERGY
     Dosage: ?          QUANTITY:1 TABLET(S);?
     Route: 048
     Dates: start: 20200204, end: 20201118

REACTIONS (28)
  - Dizziness [None]
  - Nausea [None]
  - Arthralgia [None]
  - Seizure [None]
  - Mood swings [None]
  - Irritability [None]
  - Paraesthesia [None]
  - Paralysis [None]
  - Dyspnoea [None]
  - Pallor [None]
  - Fatigue [None]
  - Malaise [None]
  - Personality change [None]
  - Feeling of despair [None]
  - Confusional state [None]
  - Muscular weakness [None]
  - Palpitations [None]
  - Abdominal pain upper [None]
  - Headache [None]
  - Dysarthria [None]
  - Diarrhoea [None]
  - Cold sweat [None]
  - Agitation [None]
  - Coordination abnormal [None]
  - Disorientation [None]
  - Aggression [None]
  - Myalgia [None]
  - Feeling abnormal [None]

NARRATIVE: CASE EVENT DATE: 20201013
